FAERS Safety Report 16386607 (Version 1)
Quarter: 2019Q2

REPORT INFORMATION
  Report Type: Spontaneous
  Country: NL (occurrence: NL)
  Receive Date: 20190604
  Receipt Date: 20190604
  Transmission Date: 20190711
  Serious: Yes (Hospitalization)
  Sender: FDA-Public Use
  Company Number: NL-TEVA-2019-NL-1057758

PATIENT
  Age: 80 Year
  Sex: Female
  Weight: 61 kg

DRUGS (4)
  1. OXIZAPAM [Concomitant]
     Route: 065
  2. TEMAZAPAN [Concomitant]
  3. OXYCODONE HYDROCHLORIDE. [Suspect]
     Active Substance: OXYCODONE HYDROCHLORIDE
     Indication: BACK DISORDER
     Dosage: 4X5MG
     Route: 065
     Dates: start: 20180514
  4. MAAG BESCHERMERS [Concomitant]
     Route: 065

REACTIONS (7)
  - Malaise [Recovered/Resolved with Sequelae]
  - Chills [Recovered/Resolved with Sequelae]
  - Anxiety [Recovered/Resolved with Sequelae]
  - Diarrhoea [Recovered/Resolved with Sequelae]
  - Headache [Recovered/Resolved with Sequelae]
  - Insomnia [Recovered/Resolved with Sequelae]
  - Asthenia [Recovered/Resolved with Sequelae]

NARRATIVE: CASE EVENT DATE: 20190414
